FAERS Safety Report 25578866 (Version 1)
Quarter: 2025Q3

REPORT INFORMATION
  Report Type: Report from Study
  Country: US (occurrence: US)
  Receive Date: 20250718
  Receipt Date: 20250718
  Transmission Date: 20251021
  Serious: Yes (Death)
  Sender: ROCHE
  Company Number: US-ROCHE-10000339816

PATIENT
  Age: 92 Year
  Sex: Male

DRUGS (2)
  1. ZELBORAF [Suspect]
     Active Substance: VEMURAFENIB
     Indication: Hairy cell leukaemia
     Dosage: TAKE 1 TABLET BY MOUTH EVERY 12 HOURS WITH A GLASS OF WATER (SWALLOW WHOLE; MISSED DOSE?MAY BE TAKEN
     Route: 048
  2. ZELBORAF [Suspect]
     Active Substance: VEMURAFENIB
     Indication: Hairy cell leukaemia recurrent

REACTIONS (2)
  - Neoplasm malignant [Fatal]
  - Off label use [Unknown]
